FAERS Safety Report 21606570 (Version 1)
Quarter: 2022Q4

REPORT INFORMATION
  Report Type: Spontaneous
  Country: US (occurrence: US)
  Receive Date: 20221117
  Receipt Date: 20221117
  Transmission Date: 20230113
  Serious: No
  Sender: FDA-Public Use
  Company Number: US-JNJFOC-20221108965

PATIENT
  Sex: Female

DRUGS (10)
  1. SIMPONI ARIA [Suspect]
     Active Substance: GOLIMUMAB
     Indication: Psoriatic arthropathy
     Route: 041
     Dates: start: 20221002
  2. SIMPONI ARIA [Suspect]
     Active Substance: GOLIMUMAB
     Indication: Ankylosing spondylitis
  3. FISH OIL [Concomitant]
     Active Substance: FISH OIL
  4. PRIMROSE OIL [Concomitant]
  5. VITAMIN D NOS [Concomitant]
     Active Substance: VITAMIN D NOS
  6. VITAMIN C [Concomitant]
     Active Substance: ASCORBIC ACID
  7. MAGNESIUM ASPARTATE\POTASSIUM ASPARTATE [Concomitant]
     Active Substance: MAGNESIUM ASPARTATE\POTASSIUM ASPARTATE
  8. GLUCOSAMINE CHONDROITIN ADVANCED [Concomitant]
  9. ESSENTIAL OILS NOS;MENTHOL [Concomitant]
  10. TURKEY TAIL [Concomitant]

REACTIONS (5)
  - Asthenia [Recovered/Resolved]
  - Immune system disorder [Unknown]
  - Red blood cell abnormality [Unknown]
  - White blood cell disorder [Unknown]
  - COVID-19 [Unknown]

NARRATIVE: CASE EVENT DATE: 20221001
